FAERS Safety Report 9731085 (Version 2)
Quarter: 2014Q1

REPORT INFORMATION
  Report Type: Spontaneous
  Country: US (occurrence: US)
  Receive Date: 20131203
  Receipt Date: 20140120
  Transmission Date: 20141002
  Serious: Yes (Other)
  Sender: FDA-Public Use
  Company Number: US-SA-2013SA125120

PATIENT
  Age: 71 Year
  Sex: Male
  Weight: 104.3 kg

DRUGS (20)
  1. LANTUS SOLOSTAR [Suspect]
     Indication: TYPE 2 DIABETES MELLITUS
     Dosage: DOSE:50 UNIT(S)
     Route: 051
     Dates: start: 20100801
  2. LANTUS SOLOSTAR [Suspect]
     Indication: TYPE 2 DIABETES MELLITUS
     Dosage: DOSE:50 UNIT(S)
     Route: 051
     Dates: start: 20100801
  3. SOLOSTAR [Concomitant]
     Indication: TYPE 2 DIABETES MELLITUS
     Dates: start: 2010
  4. SOLOSTAR [Concomitant]
     Indication: TYPE 2 DIABETES MELLITUS
     Dates: start: 2010
  5. COREG [Concomitant]
     Route: 048
  6. PRILOSEC [Concomitant]
     Route: 048
  7. WARFARIN [Concomitant]
     Route: 048
  8. METFORMIN [Concomitant]
     Route: 048
  9. GLIMEPIRIDE [Concomitant]
     Route: 048
  10. JANUVIA [Concomitant]
     Route: 048
  11. EFFEXOR [Concomitant]
     Route: 048
  12. DIGOXIN [Concomitant]
     Route: 048
  13. XANAX [Concomitant]
     Route: 048
  14. ZYRTEC [Concomitant]
     Route: 048
  15. TRAZODONE [Concomitant]
     Route: 048
  16. LOSARTAN POTASSIUM [Concomitant]
     Route: 048
  17. LANTUS [Concomitant]
     Dosage: DOSE:50 UNIT(S)
     Route: 065
  18. CRESTOR [Concomitant]
     Route: 048
  19. FERROUS SULFATE [Concomitant]
     Route: 048
  20. VITAMIN D [Concomitant]
     Route: 065

REACTIONS (1)
  - Dementia [Not Recovered/Not Resolved]
